FAERS Safety Report 25408551 (Version 1)
Quarter: 2025Q2

REPORT INFORMATION
  Report Type: Spontaneous
  Country: CN (occurrence: CN)
  Receive Date: 20250606
  Receipt Date: 20250606
  Transmission Date: 20250717
  Serious: Yes (Hospitalization)
  Sender: ELI LILLY AND COMPANY
  Company Number: CN-ELI_LILLY_AND_COMPANY-CN202505024946

PATIENT
  Age: 32 Year
  Sex: Female
  Weight: 52.5 kg

DRUGS (1)
  1. IXEKIZUMAB [Suspect]
     Active Substance: IXEKIZUMAB
     Indication: Ankylosing spondylitis
     Route: 058
     Dates: start: 20250519, end: 20250519

REACTIONS (9)
  - Dermatitis allergic [Recovering/Resolving]
  - Off label use [Unknown]
  - Palpitations [Recovered/Resolved]
  - Nausea [Recovered/Resolved]
  - Injection site vesicles [Not Recovered/Not Resolved]
  - Injection site rash [Recovering/Resolving]
  - Injection site warmth [Unknown]
  - Injection site swelling [Recovering/Resolving]
  - Injection site erythema [Recovering/Resolving]

NARRATIVE: CASE EVENT DATE: 20250519
